FAERS Safety Report 8439973-9 (Version None)
Quarter: 2012Q2

REPORT INFORMATION
  Report Type: 
  Country: None (occurrence: None)
  Receive Date: 20120608
  Receipt Date: 20120530
  Transmission Date: 20120825
  Serious: Yes (Life-Threatening, Hospitalization)
  Sender: FDA-Public Use
  Company Number: DSM-2012-00627

PATIENT
  Age: 58 Year
  Sex: Female

DRUGS (3)
  1. OLMESARTAN MEDOXOMIL AND HYDROCHLOROTHIZIDE [Suspect]
     Indication: PRODUCT USED FOR UNKNOWN INDICATION
     Dosage: ORAL
     Route: 048
     Dates: end: 20110101
  2. JANUMET (METFORMIN HYDROCHLORIDE, SITAGLIPTIN PHOSPHATE) (METFORMIN HY [Concomitant]
  3. REPAGLINIDE [Concomitant]

REACTIONS (9)
  - DEPRESSED LEVEL OF CONSCIOUSNESS [None]
  - HYPOTHERMIA [None]
  - RENAL FAILURE ACUTE [None]
  - ABNORMAL BEHAVIOUR [None]
  - SOMNOLENCE [None]
  - ANURIA [None]
  - DISORIENTATION [None]
  - HYPERKALAEMIA [None]
  - LACTIC ACIDOSIS [None]
